FAERS Safety Report 6926434-9 (Version None)
Quarter: 2010Q3

REPORT INFORMATION
  Report Type: 
  Country: None (occurrence: None)
  Receive Date: 20100816
  Receipt Date: 20100715
  Transmission Date: 20110219
  Serious: Yes (Hospitalization, Other)
  Sender: FDA-Public Use
  Company Number: US-BAYER-201028419NA

PATIENT
  Age: 42 Year
  Sex: Male

DRUGS (2)
  1. BETASERON [Suspect]
     Indication: MULTIPLE SCLEROSIS
     Dosage: TOTAL DAILY DOSE: 8 MIU
     Route: 058
     Dates: start: 20080901
  2. CARBATROL [Suspect]
     Indication: CONVULSION
     Dates: start: 20100517

REACTIONS (2)
  - CONVULSION [None]
  - DERMATITIS ALLERGIC [None]
